FAERS Safety Report 10488152 (Version 1)
Quarter: 2014Q4

REPORT INFORMATION
  Report Type: Spontaneous
  Country: VE (occurrence: VE)
  Receive Date: 20141002
  Receipt Date: 20141002
  Transmission Date: 20150528
  Serious: Yes (Other)
  Sender: FDA-Public Use
  Company Number: VE-ROCHE-1468577

PATIENT
  Age: 39 Year
  Sex: Female

DRUGS (2)
  1. XOLAIR [Suspect]
     Active Substance: OMALIZUMAB
     Route: 030
     Dates: end: 201402
  2. XOLAIR [Suspect]
     Active Substance: OMALIZUMAB
     Indication: URTICARIA
     Route: 030

REACTIONS (9)
  - Breast mass [Not Recovered/Not Resolved]
  - Incorrect route of drug administration [Unknown]
  - Pyrexia [Not Recovered/Not Resolved]
  - Hypersensitivity [Not Recovered/Not Resolved]
  - Tonsillitis [Not Recovered/Not Resolved]
  - Drug administered at inappropriate site [Unknown]
  - Pruritus [Not Recovered/Not Resolved]
  - Product use issue [Unknown]
  - Sleep disorder [Unknown]

NARRATIVE: CASE EVENT DATE: 201403
